FAERS Safety Report 7815048-4 (Version None)
Quarter: 2011Q4

REPORT INFORMATION
  Report Type: 
  Country: None (occurrence: None)
  Receive Date: 20111013
  Receipt Date: 20111013
  Transmission Date: 20120403
  Serious: Yes (Other)
  Sender: FDA-Public Use
  Company Number: None

PATIENT
  Sex: Female
  Weight: 54.8852 kg

DRUGS (1)
  1. NEOMYCIN AND POLYMYXIN B SULFATES AND HYDROCORTISONE [Suspect]
     Indication: EAR DISORDER
     Dosage: 4 DROPS INTO AFFECTED EAR DAILY  3X DAY FOR 7 DAYS
     Dates: start: 20110812, end: 20110819

REACTIONS (18)
  - OROPHARYNGEAL PAIN [None]
  - MYALGIA [None]
  - CHEST DISCOMFORT [None]
  - EYE PAIN [None]
  - PRURITUS [None]
  - EPISTAXIS [None]
  - BURNING SENSATION [None]
  - EAR DISORDER [None]
  - NASAL CONGESTION [None]
  - HEADACHE [None]
  - SNEEZING [None]
  - SLEEP DISORDER [None]
  - EYE PRURITUS [None]
  - PAIN [None]
  - OCULAR HYPERAEMIA [None]
  - URTICARIA [None]
  - COUGH [None]
  - VISION BLURRED [None]
